FAERS Safety Report 4466381-8 (Version None)
Quarter: 2004Q3

REPORT INFORMATION
  Report Type: 
  Country: None (occurrence: None)
  Receive Date: 20040930
  Receipt Date: 20040915
  Transmission Date: 20050211
  Serious: Yes (Hospitalization)
  Sender: FDA-Public Use
  Company Number: 2004-BP-06980BP

PATIENT
  Age: 90 Year
  Sex: Male

DRUGS (15)
  1. COMBIVENT [Suspect]
     Indication: CHRONIC OBSTRUCTIVE AIRWAYS DISEASE
     Dosage: SEE IMAGE
     Route: 055
  2. COMBIVENT [Suspect]
     Indication: EMPHYSEMA
     Dosage: SEE IMAGE
     Route: 055
  3. COMBIVENT [Suspect]
     Indication: CHRONIC OBSTRUCTIVE AIRWAYS DISEASE
     Dosage: SEE IMAGE
     Route: 055
     Dates: start: 20040824
  4. COMBIVENT [Suspect]
     Indication: EMPHYSEMA
     Dosage: SEE IMAGE
     Route: 055
     Dates: start: 20040824
  5. ALBUTEROL SULFATE [Concomitant]
  6. SEREVENT [Concomitant]
  7. IPRATROPIUM BROMIDE [Concomitant]
  8. PLAVIX [Concomitant]
  9. BAYER [Concomitant]
  10. FUROSEMIDE (FUROSEMDIE0 [Concomitant]
  11. AVAPRO [Concomitant]
  12. CENTRUM SILVER (CENTRUM SILVER) [Concomitant]
  13. VITAMIN E [Concomitant]
  14. COD LIVER OIL (COD-LIVER OIL) [Concomitant]
  15. COMBIVENT [Suspect]

REACTIONS (4)
  - DYSPNOEA EXACERBATED [None]
  - PHARMACEUTICAL PRODUCT COMPLAINT [None]
  - PNEUMONIA [None]
  - THERAPEUTIC RESPONSE DECREASED [None]
